FAERS Safety Report 8916504 (Version 1)
Quarter: 2012Q4

REPORT INFORMATION
  Report Type: 
  Country: SE (occurrence: SE)
  Receive Date: 20121120
  Receipt Date: 20121120
  Transmission Date: 20130627
  Serious: Yes (Hospitalization)
  Sender: FDA-Public Use
  Company Number: SE-PFIZER INC-2012287648

PATIENT
  Age: 75 Year
  Sex: Female
  Weight: 68.6 kg

DRUGS (9)
  1. GENOTROPIN [Suspect]
     Dosage: 0.1 mg, 1x/day, 7 injections/week
     Route: 058
     Dates: start: 20020205
  2. CORTONE [Concomitant]
     Indication: ACTH DECREASED
     Dosage: UNK
     Dates: start: 19920101
  3. DESMOPRESSIN [Concomitant]
     Indication: ADH DECREASED
     Dosage: UNK
     Dates: start: 19920101
  4. LEVAXIN [Concomitant]
     Indication: THYROID DISORDER
     Dosage: UNK
     Dates: start: 19960515
  5. LEVAXIN [Concomitant]
     Indication: PRIMARY HYPOTHYROIDISM
  6. TROMBYL [Concomitant]
     Indication: VENOUS EMBOLISM AND THROMBOSIS, OTHER
     Dosage: UNK
     Dates: start: 20000115
  7. DESMOPRESSIN [Concomitant]
     Indication: ADH DECREASED
     Dosage: UNK
     Dates: start: 20020206
  8. ZOCORD [Concomitant]
     Indication: PARAPROTEINEMIA
     Dosage: UNK
     Dates: start: 20000115
  9. CORTISONE ACETATE [Concomitant]
     Indication: ACTH DECREASED
     Dosage: UNK
     Dates: start: 20001108

REACTIONS (1)
  - Hypotension [Unknown]
